FAERS Safety Report 24556523 (Version 2)
Quarter: 2025Q1

REPORT INFORMATION
  Report Type: Spontaneous
  Country: US (occurrence: US)
  Receive Date: 20241028
  Receipt Date: 20250203
  Transmission Date: 20250408
  Serious: No
  Sender: MERCK
  Company Number: US-009507513-2410USA002454

PATIENT
  Sex: Female
  Weight: 87.982 kg

DRUGS (12)
  1. WINREVAIR [Suspect]
     Active Substance: SOTATERCEPT-CSRK
     Indication: Product used for unknown indication
     Dates: start: 2024
  2. REMODULIN [Suspect]
     Active Substance: TREPROSTINIL
     Indication: Pulmonary arterial hypertension
     Route: 041
     Dates: start: 20230807
  3. REMODULIN [Suspect]
     Active Substance: TREPROSTINIL
     Route: 041
  4. REMODULIN [Suspect]
     Active Substance: TREPROSTINIL
     Route: 041
  5. FIORICET [Concomitant]
     Active Substance: ACETAMINOPHEN\BUTALBITAL\CAFFEINE
  6. VITAMINS [Concomitant]
     Active Substance: VITAMINS
  7. OPSUMIT [Concomitant]
     Active Substance: MACITENTAN
  8. IMODIUM A-D [Concomitant]
     Active Substance: LOPERAMIDE HYDROCHLORIDE
  9. REVATIO [Concomitant]
     Active Substance: SILDENAFIL CITRATE
  10. ONDANSETRON HYDROCHLORIDE [Concomitant]
     Active Substance: ONDANSETRON HYDROCHLORIDE
  11. TORSEMIDE [Concomitant]
     Active Substance: TORSEMIDE
  12. AMBRISENTAN [Concomitant]
     Active Substance: AMBRISENTAN

REACTIONS (2)
  - Injection site scab [Unknown]
  - Haemoglobin increased [Unknown]

NARRATIVE: CASE EVENT DATE: 20240101
